FAERS Safety Report 21819442 (Version 2)
Quarter: 2023Q1

REPORT INFORMATION
  Report Type: Spontaneous
  Country: US (occurrence: US)
  Receive Date: 20230104
  Receipt Date: 20230309
  Transmission Date: 20230418
  Serious: Yes (Other)
  Sender: FDA-Public Use
  Company Number: US-SA-SAC20230102000186

PATIENT
  Age: 56 Year
  Sex: Female
  Weight: 107.5 kg

DRUGS (2)
  1. DUPIXENT [Suspect]
     Active Substance: DUPILUMAB
     Indication: Chronic rhinosinusitis with nasal polyps
     Dosage: 300 MG, QOW
     Route: 058
     Dates: start: 202212
  2. DUPIXENT [Suspect]
     Active Substance: DUPILUMAB
     Indication: Nasal polyps

REACTIONS (8)
  - Gallbladder operation [Unknown]
  - Hordeolum [Not Recovered/Not Resolved]
  - Periorbital swelling [Unknown]
  - Erythema of eyelid [Unknown]
  - Rosacea [Unknown]
  - Visual impairment [Not Recovered/Not Resolved]
  - Eye swelling [Unknown]
  - Dry eye [Unknown]

NARRATIVE: CASE EVENT DATE: 20221201
